FAERS Safety Report 6743046-0 (Version None)
Quarter: 2010Q2

REPORT INFORMATION
  Report Type: 
  Country: None (occurrence: None)
  Receive Date: 20100527
  Receipt Date: 20100517
  Transmission Date: 20101027
  Serious: Yes (Hospitalization)
  Sender: FDA-Public Use
  Company Number: US-ASTRAZENECA-2006UW20997

PATIENT
  Age: 560 Month
  Sex: Male
  Weight: 135.2 kg

DRUGS (19)
  1. SEROQUEL [Suspect]
     Indication: POST-TRAUMATIC STRESS DISORDER
     Route: 048
     Dates: start: 20030929, end: 20071001
  2. SEROQUEL [Suspect]
     Route: 048
     Dates: start: 20060310
  3. METHADONE [Concomitant]
  4. PARAFON FORTE [Concomitant]
  5. PERCOCET [Concomitant]
  6. LEVOXYL [Concomitant]
  7. REMERON [Concomitant]
  8. NEURONTIN [Concomitant]
  9. WELLBUTRIN [Concomitant]
  10. VALIUM [Concomitant]
  11. SONATA [Concomitant]
  12. NICORETTE [Concomitant]
  13. OXYCONTIN [Concomitant]
     Dates: start: 20060310
  14. AMBIEN [Concomitant]
     Dates: start: 20060310
  15. LISINOPRIL [Concomitant]
     Dates: start: 20060313
  16. DOXEPIN HCL [Concomitant]
     Dates: start: 20060313
  17. QUININE SULFATE [Concomitant]
     Dates: start: 20060320
  18. CLONAZEPAM [Concomitant]
     Dates: start: 20060322
  19. TOPAMAX [Concomitant]
     Dates: start: 20060407

REACTIONS (23)
  - ABDOMINAL PAIN [None]
  - ABSCESS [None]
  - ASTIGMATISM [None]
  - CELLULITIS [None]
  - CONTUSION [None]
  - DERMAL CYST [None]
  - HYPERGLYCAEMIA [None]
  - JOINT SPRAIN [None]
  - MAJOR DEPRESSION [None]
  - MUSCLE STRAIN [None]
  - MYOPIA [None]
  - NEUROPATHY PERIPHERAL [None]
  - OBESITY [None]
  - PAIN IN EXTREMITY [None]
  - PRESBYOPIA [None]
  - PSYCHOGENIC PAIN DISORDER [None]
  - RADICULAR PAIN [None]
  - RASH [None]
  - ROAD TRAFFIC ACCIDENT [None]
  - SKIN LACERATION [None]
  - SPLENOMEGALY [None]
  - TYPE 2 DIABETES MELLITUS [None]
  - VOMITING [None]
